FAERS Safety Report 13699202 (Version 1)
Quarter: 2017Q2

REPORT INFORMATION
  Report Type: Spontaneous
  Country: JP (occurrence: JP)
  Receive Date: 20170628
  Receipt Date: 20170628
  Transmission Date: 20170830
  Serious: Yes (Hospitalization)
  Sender: FDA-Public Use
  Company Number: JP-IMPAX LABORATORIES, INC-2017-IPXL-01845

PATIENT
  Age: 20 Year
  Sex: Female

DRUGS (3)
  1. LAMOTRIGINE ODT [Suspect]
     Active Substance: LAMOTRIGINE
     Indication: AFFECTIVE DISORDER
     Dosage: 25 MG, EVERY OTHER DAY
     Route: 065
  2. DIVALPROEX SODIUM ER [Suspect]
     Active Substance: DIVALPROEX SODIUM
     Indication: SCHIZOAFFECTIVE DISORDER DEPRESSIVE TYPE
     Dosage: 800 MG, DAILY, CONTINUOUS THERAPY
     Route: 048
  3. ARIPIPRAZOLE. [Suspect]
     Active Substance: ARIPIPRAZOLE
     Indication: SCHIZOAFFECTIVE DISORDER DEPRESSIVE TYPE
     Dosage: 24 MG/DAY, DAILY CONTINUOUS THERAPY
     Route: 048

REACTIONS (8)
  - Drug interaction [Unknown]
  - Acute respiratory distress syndrome [Recovered/Resolved]
  - Hepatic function abnormal [Recovered/Resolved]
  - Disseminated intravascular coagulation [Recovered/Resolved]
  - Drug ineffective for unapproved indication [Unknown]
  - Swelling face [Recovered/Resolved]
  - Lymphadenopathy [Recovered/Resolved]
  - Hypersensitivity [Recovered/Resolved]
